FAERS Safety Report 18593557 (Version 1)
Quarter: 2020Q4

REPORT INFORMATION
  Report Type: Report from Study
  Country: None (occurrence: US)
  Receive Date: 20201208
  Receipt Date: 20201208
  Transmission Date: 20210114
  Serious: Yes (Death, Other)
  Sender: FDA-Public Use
  Company Number: US-ABBVIE-20K-163-3674953-00

PATIENT
  Sex: Female

DRUGS (1)
  1. VICODIN [Suspect]
     Active Substance: ACETAMINOPHEN\HYDROCODONE BITARTRATE
     Indication: PRODUCT USED FOR UNKNOWN INDICATION
     Route: 048
     Dates: start: 1980

REACTIONS (5)
  - Drug dependence [Unknown]
  - Death [Fatal]
  - Migraine [Unknown]
  - Head injury [Unknown]
  - Pain [Unknown]

NARRATIVE: CASE EVENT DATE: 1980
